FAERS Safety Report 6354706-8 (Version None)
Quarter: 2009Q3

REPORT INFORMATION
  Report Type: 
  Country: None (occurrence: None)
  Receive Date: 20090914
  Receipt Date: 20090908
  Transmission Date: 20100115
  Serious: Yes (Hospitalization)
  Sender: FDA-Public Use
  Company Number: US-ELI_LILLY_AND_COMPANY-US200909001713

PATIENT
  Sex: Male

DRUGS (12)
  1. HUMULIN R [Suspect]
     Indication: TYPE 2 DIABETES MELLITUS
     Dosage: 24 U, 4/D
     Dates: start: 20090601
  2. INSULIN REGULAR                    /01223201/ [Concomitant]
     Dates: start: 20090901
  3. AMLODIPINE [Concomitant]
  4. ATENOLOL [Concomitant]
  5. AVIDART [Concomitant]
  6. BENICAR [Concomitant]
  7. FOLIC ACID [Concomitant]
  8. METFORMIN HCL [Concomitant]
  9. SIMVASTATIN [Concomitant]
  10. TRICOR [Concomitant]
  11. QUININE SULFATE [Concomitant]
  12. ZETIA [Concomitant]

REACTIONS (5)
  - BLOOD GLUCOSE INCREASED [None]
  - CARDIAC MURMUR FUNCTIONAL [None]
  - HAEMORRHAGE [None]
  - NEOPLASM MALIGNANT [None]
  - UNDERDOSE [None]
